FAERS Safety Report 24641248 (Version 1)
Quarter: 2024Q4

REPORT INFORMATION
  Report Type: Spontaneous
  Country: US (occurrence: None)
  Receive Date: 20241119
  Receipt Date: 20241119
  Transmission Date: 20250114
  Serious: Yes (unspecified)
  Sender: Public
  Company Number: None

PATIENT
  Age: 65 Year
  Sex: Female

DRUGS (1)
  1. IBRANCE [Suspect]
     Active Substance: PALBOCICLIB
     Indication: Breast cancer female
     Dosage: 100MG DAILY FOR 21 DAYS OF 28 DAY CYCLE ORAL
     Route: 048
     Dates: start: 20240401

REACTIONS (2)
  - Cerebrovascular accident [None]
  - Brain neoplasm malignant [None]

NARRATIVE: CASE EVENT DATE: 20241113
